FAERS Safety Report 14947926 (Version 2)
Quarter: 2018Q2

REPORT INFORMATION
  Report Type: Spontaneous
  Country: SE (occurrence: SE)
  Receive Date: 20180529
  Receipt Date: 20180614
  Transmission Date: 20180711
  Serious: Yes (Life-Threatening, Hospitalization, Disabling)
  Sender: FDA-Public Use
  Company Number: SE-TEVA-2018-SE-899300

PATIENT
  Age: 60 Year
  Sex: Female

DRUGS (12)
  1. AERIUS 5 MG FILMDRAGERAD TABLETT [Concomitant]
     Route: 065
  2. DICLOFENAC [Suspect]
     Active Substance: DICLOFENAC
     Indication: ARTHRALGIA
     Dosage: 50 1X1-2
     Route: 048
     Dates: start: 20171212, end: 20171223
  3. SELOKENZOC 50 MG DEPOTTABLETT [Concomitant]
     Route: 065
  4. PEVISONE 1 MG/G + 10 MG/G KR?M [Concomitant]
     Route: 065
  5. ACETYLCYSTEIN MEDA 200 MG BRUSTABLETT [Concomitant]
     Route: 065
  6. OVIXAN 1 MG/G KR?M [Concomitant]
  7. OMEPRAZOL ACTAVIS 20 MG ENTEROKAPSEL, H?RD [Concomitant]
     Route: 065
  8. CANODERM 5 % KUTAN EMULSION [Concomitant]
     Route: 065
  9. SALURES 5 MG TABLETT [Concomitant]
     Route: 065
  10. BRICANYL TURBUHALER 0,5 MG/DOS INHALATIONSPULVER [Concomitant]
     Route: 065
  11. BETNOVAT 1 MG/ML KUTAN EMULSION [Concomitant]
     Route: 065
  12. CITODON 500 MG/30 MG TABLETT [Concomitant]
     Route: 065

REACTIONS (1)
  - Subarachnoid haemorrhage [Not Recovered/Not Resolved]

NARRATIVE: CASE EVENT DATE: 20171223
